FAERS Safety Report 7557206-2 (Version None)
Quarter: 2011Q2

REPORT INFORMATION
  Report Type: 
  Country: None (occurrence: None)
  Receive Date: 20110620
  Receipt Date: 20100628
  Transmission Date: 20111010
  Serious: No
  Sender: FDA-Public Use
  Company Number: US-MYLANLABS-2010S1011473

PATIENT
  Age: 73 Year
  Sex: Male
  Weight: 65.77 kg

DRUGS (7)
  1. PLAVIX [Concomitant]
  2. PERFOROMIST [Suspect]
     Indication: CHRONIC OBSTRUCTIVE PULMONARY DISEASE
     Route: 055
     Dates: start: 20100101
  3. DIOVAN [Concomitant]
  4. PERFOROMIST [Suspect]
     Indication: EMPHYSEMA
     Route: 055
     Dates: start: 20100101
  5. ASPIRIN [Concomitant]
  6. XANAX [Concomitant]
  7. NORVASC [Concomitant]

REACTIONS (2)
  - TREMOR [None]
  - NERVOUSNESS [None]
